FAERS Safety Report 10343260 (Version 1)
Quarter: 2014Q3

REPORT INFORMATION
  Report Type: Spontaneous
  Country: NZ (occurrence: NZ)
  Receive Date: 20140725
  Receipt Date: 20140725
  Transmission Date: 20150326
  Serious: Yes (Life-Threatening)
  Sender: FDA-Public Use
  Company Number: NZ-ALLERGAN-1416421US

PATIENT
  Age: 66 Year
  Sex: Female

DRUGS (1)
  1. LUMIGAN [Suspect]
     Active Substance: BIMATOPROST
     Indication: GLAUCOMA
     Dosage: 4 DF, QD
     Route: 047
     Dates: start: 20100603, end: 20100604

REACTIONS (3)
  - Hypoaesthesia [Recovering/Resolving]
  - Urticaria [Recovering/Resolving]
  - Anaphylactic reaction [Recovering/Resolving]

NARRATIVE: CASE EVENT DATE: 20100604
